FAERS Safety Report 10666298 (Version 2)
Quarter: 2014Q4

REPORT INFORMATION
  Report Type: Spontaneous
  Country: DE (occurrence: DE)
  Receive Date: 20141220
  Receipt Date: 20141220
  Transmission Date: 20150529
  Serious: Yes (Other)
  Sender: FDA-Public Use
  Company Number: GXKR2014DE004084

PATIENT
  Sex: Female
  Weight: 58 kg

DRUGS (3)
  1. BISOHEXAL [Suspect]
     Active Substance: BISOPROLOL FUMARATE
     Indication: TACHYCARDIA
     Dosage: 1.25 MG, QD
     Route: 048
     Dates: start: 2009
  2. HCT HEXAL [Suspect]
     Active Substance: HYDROCHLOROTHIAZIDE
     Indication: TACHYCARDIA
     Dosage: 12.5 MG, QD
     Route: 048
     Dates: end: 201411
  3. AMLODIPINE BESILATE [Concomitant]
     Active Substance: AMLODIPINE BESYLATE
     Dosage: 2.5 MG, QD
     Route: 048
     Dates: start: 201410

REACTIONS (2)
  - Omphalitis [Recovering/Resolving]
  - Psoriasis [Recovering/Resolving]
